FAERS Safety Report 4382132-X (Version None)
Quarter: 2004Q2

REPORT INFORMATION
  Report Type: 
  Country: None (occurrence: None)
  Receive Date: 20040621
  Receipt Date: 20040210
  Transmission Date: 20050107
  Serious: Yes (Hospitalization)
  Sender: FDA-Public Use
  Company Number: NUBN20040003

PATIENT
  Age: 54 Year
  Sex: Male

DRUGS (3)
  1. NUBAIN [Suspect]
     Indication: PAIN
     Dosage: 10 MG ONCE IV
     Route: 042
     Dates: start: 20020823, end: 20020823
  2. TRANXENE [Suspect]
     Dosage: 20 MG TWICE PO
     Route: 048
     Dates: start: 20020823, end: 20020823
  3. ATARAX [Suspect]
     Dosage: 25 MG ONCE PO
     Route: 048
     Dates: start: 20020823, end: 20020823

REACTIONS (2)
  - RESPIRATORY DEPRESSION [None]
  - SOMNOLENCE [None]
